FAERS Safety Report 24264878 (Version 1)
Quarter: 2024Q3

REPORT INFORMATION
  Report Type: Spontaneous
  Country: US (occurrence: US)
  Receive Date: 20240829
  Receipt Date: 20240829
  Transmission Date: 20241016
  Serious: No
  Sender: MERCK
  Company Number: US-009507513-2407USA015862

PATIENT
  Sex: Female

DRUGS (1)
  1. KEYTRUDA [Suspect]
     Active Substance: PEMBROLIZUMAB
     Indication: Cervix cancer metastatic
     Dosage: 200 MILLIGRAM, Q3W
     Route: 042
     Dates: start: 202401, end: 20240702

REACTIONS (6)
  - Ill-defined disorder [Recovered/Resolved]
  - Lip swelling [Recovered/Resolved]
  - Chapped lips [Recovered/Resolved]
  - Mouth ulceration [Recovered/Resolved]
  - Dysphagia [Recovered/Resolved]
  - Impaired work ability [Recovered/Resolved]

NARRATIVE: CASE EVENT DATE: 20240101
